FAERS Safety Report 20407777 (Version 2)
Quarter: 2022Q1

REPORT INFORMATION
  Report Type: Report from Study
  Country: CA (occurrence: CA)
  Receive Date: 20220131
  Receipt Date: 20220206
  Transmission Date: 20220423
  Serious: Yes (Other)
  Sender: FDA-Public Use
  Company Number: CA-ABBVIE-22K-028-4252587-00

PATIENT
  Age: 70 Year
  Sex: Male

DRUGS (2)
  1. RINVOQ [Suspect]
     Active Substance: UPADACITINIB
     Indication: Rheumatoid arthritis
     Route: 048
     Dates: start: 20220110
  2. METHOTREXATE [Concomitant]
     Active Substance: METHOTREXATE
     Indication: Product used for unknown indication
     Route: 065

REACTIONS (11)
  - Apnoea [Unknown]
  - Hypersomnia [Unknown]
  - Feeling cold [Unknown]
  - Back pain [Unknown]
  - Muscle spasms [Recovering/Resolving]
  - COVID-19 [Unknown]
  - Malaise [Unknown]
  - Ear infection [Recovered/Resolved]
  - Hypophagia [Unknown]
  - Abdominal pain upper [Unknown]
  - Skin discolouration [Unknown]

NARRATIVE: CASE EVENT DATE: 20220101
